FAERS Safety Report 21392065 (Version 1)
Quarter: 2022Q3

REPORT INFORMATION
  Report Type: Spontaneous
  Country: US (occurrence: None)
  Receive Date: 20220928
  Receipt Date: 20220928
  Transmission Date: 20221026
  Serious: Yes (Other)
  Sender: FDA-Public Use
  Company Number: None

PATIENT
  Age: 33 Year
  Sex: Male
  Weight: 72 kg

DRUGS (1)
  1. VENLAFAXINE [Suspect]
     Active Substance: VENLAFAXINE HYDROCHLORIDE
     Indication: Headache

REACTIONS (6)
  - Emotional disorder [None]
  - Erectile dysfunction [None]
  - Loss of libido [None]
  - Hypohidrosis [None]
  - Alopecia [None]
  - Hydrocele [None]

NARRATIVE: CASE EVENT DATE: 20220328
